FAERS Safety Report 11565610 (Version 1)
Quarter: 2015Q3

REPORT INFORMATION
  Report Type: Spontaneous
  Country: US (occurrence: US)
  Receive Date: 20150928
  Receipt Date: 20150928
  Transmission Date: 20151125
  Serious: No
  Sender: FDA-Public Use
  Company Number: US-OTSUKA-US-2013-12343

PATIENT

DRUGS (6)
  1. TRILEPTAL FILM-COATED TABLET [Concomitant]
     Indication: PRODUCT USED FOR UNKNOWN INDICATION
     Dosage: 300 MG, 1 ORALLY AM, 2 PM
  2. ABILIFY MAINTENA [Suspect]
     Active Substance: ARIPIPRAZOLE
     Dosage: 400 MG, QM
     Route: 030
     Dates: start: 20131029
  3. ABILIFY MAINTENA [Suspect]
     Active Substance: ARIPIPRAZOLE
     Dosage: 400 MG, QM
     Route: 030
     Dates: start: 20131202, end: 201412
  4. SYNTHROID [Concomitant]
     Active Substance: LEVOTHYROXINE SODIUM
     Indication: PRODUCT USED FOR UNKNOWN INDICATION
     Dosage: UNK
  5. ABILIFY MAINTENA [Suspect]
     Active Substance: ARIPIPRAZOLE
     Indication: SCHIZOPHRENIA
     Dosage: 400 MG, QM
     Route: 030
     Dates: start: 20130827
  6. ABILIFY MAINTENA [Suspect]
     Active Substance: ARIPIPRAZOLE
     Dosage: 400 MG, QM
     Route: 030
     Dates: start: 20130926

REACTIONS (11)
  - Visual impairment [Recovered/Resolved]
  - Cough [Unknown]
  - Depressed mood [Recovered/Resolved]
  - Decreased activity [Not Recovered/Not Resolved]
  - Nasal discomfort [Recovered/Resolved]
  - Respiration abnormal [Recovered/Resolved]
  - Secretion discharge [Unknown]
  - Pyrexia [Unknown]
  - Eye discharge [Recovered/Resolved]
  - Increased appetite [Not Recovered/Not Resolved]
  - Thirst [Unknown]

NARRATIVE: CASE EVENT DATE: 2013
